FAERS Safety Report 8900549 (Version 7)
Quarter: 2013Q2

REPORT INFORMATION
  Report Type: Spontaneous
  Country: US (occurrence: US)
  Receive Date: 20121109
  Receipt Date: 20130521
  Transmission Date: 20140414
  Serious: Yes (Hospitalization, Other)
  Sender: FDA-Public Use
  Company Number: US-MERCK-1211USA003064

PATIENT
  Sex: Female
  Weight: 65.76 kg

DRUGS (3)
  1. FOSAMAX [Suspect]
     Indication: BONE DENSITY ABNORMAL
     Dosage: 10 MG, UNK
     Route: 048
  2. FOSAMAX [Suspect]
     Dosage: 70 MG, QW
     Route: 048
     Dates: start: 20040128, end: 2011
  3. ALENDRONATE SODIUM [Suspect]
     Dosage: 70 MG, QW
     Route: 048
     Dates: start: 20110522

REACTIONS (32)
  - Femur fracture [Unknown]
  - Open reduction of fracture [Unknown]
  - Hip arthroplasty [Unknown]
  - Hip arthroplasty [Unknown]
  - Knee arthroplasty [Unknown]
  - Open reduction of fracture [Unknown]
  - Mammoplasty [Unknown]
  - Cholecystectomy [Unknown]
  - Spinal compression fracture [Unknown]
  - Spinal compression fracture [Unknown]
  - Low turnover osteopathy [Unknown]
  - Ulna fracture [Unknown]
  - Glaucoma surgery [Unknown]
  - Rotator cuff syndrome [Unknown]
  - Arthritis [Unknown]
  - Bradycardia [Unknown]
  - Electrocardiogram T wave abnormal [Unknown]
  - Fall [Unknown]
  - Urinary incontinence [Unknown]
  - Coronary artery disease [Unknown]
  - Atrial fibrillation [Unknown]
  - Head injury [Unknown]
  - Hyperlipidaemia [Unknown]
  - Hypertension [Unknown]
  - Surgery [Unknown]
  - Osteoporosis [Unknown]
  - Contusion [Unknown]
  - Excoriation [Unknown]
  - Laceration [Unknown]
  - Tooth extraction [Unknown]
  - Anaemia [Unknown]
  - Anaemia [Unknown]
